FAERS Safety Report 25044916 (Version 1)
Quarter: 2025Q1

REPORT INFORMATION
  Report Type: Spontaneous
  Country: US (occurrence: US)
  Receive Date: 20250306
  Receipt Date: 20250306
  Transmission Date: 20250409
  Serious: Yes (Hospitalization)
  Sender: BIOFRONTERA BIOSCIENCE
  Company Number: US-Biofrontera-2025BIO00023

PATIENT
  Sex: Male

DRUGS (2)
  1. AMELUZ [Suspect]
     Active Substance: AMINOLEVULINIC ACID HYDROCHLORIDE
     Indication: Actinic keratosis
     Route: 050
     Dates: start: 20250109, end: 20250109
  2. DEVICE [Suspect]
     Active Substance: DEVICE
     Indication: Actinic keratosis
     Dates: start: 20250109, end: 20250109

REACTIONS (1)
  - Amnesia [Recovered/Resolved]

NARRATIVE: CASE EVENT DATE: 20250201
